FAERS Safety Report 8320548-7 (Version None)
Quarter: 2012Q2

REPORT INFORMATION
  Report Type: 
  Country: None (occurrence: None)
  Receive Date: 20120430
  Receipt Date: 20120423
  Transmission Date: 20120825
  Serious: Yes (Other)
  Sender: FDA-Public Use
  Company Number: BR-PFIZER INC-2012101410

PATIENT
  Age: 63 Year
  Sex: Female

DRUGS (1)
  1. XALATAN [Suspect]
     Dosage: UNK
     Route: 047
     Dates: start: 20030101, end: 20060101

REACTIONS (1)
  - GLAUCOMA [None]
